FAERS Safety Report 9804579 (Version 1)
Quarter: 2014Q1

REPORT INFORMATION
  Report Type: Spontaneous
  Country: CA (occurrence: CA)
  Receive Date: 20140108
  Receipt Date: 20140108
  Transmission Date: 20141002
  Serious: Yes (Life-Threatening)
  Sender: FDA-Public Use
  Company Number: CA-B.I. PHARMACEUTICALS,INC./RIDGEFIELD-2014-BI-00790CN

PATIENT
  Age: 82 Year
  Sex: Male
  Weight: 93 kg

DRUGS (8)
  1. SPIRIVA [Suspect]
     Dosage: 1.0 DOSAGE FORM
     Route: 055
  2. ATASOL [Concomitant]
  3. ATIVAN [Concomitant]
  4. ATROVENT [Concomitant]
  5. CARDIZEM CD [Concomitant]
  6. COUMADIN [Concomitant]
  7. INHIBACE [Concomitant]
  8. LASIX [Concomitant]

REACTIONS (2)
  - Atrial flutter [Recovered/Resolved]
  - Atrioventricular block [Recovered/Resolved]
